FAERS Safety Report 8233822-X (Version None)
Quarter: 2012Q1

REPORT INFORMATION
  Report Type: 
  Country: None (occurrence: None)
  Receive Date: 20120326
  Receipt Date: 20120320
  Transmission Date: 20120608
  Serious: Yes (Death, Hospitalization, Other)
  Sender: FDA-Public Use
  Company Number: US-ASTELLAS-2012US001617

PATIENT
  Sex: Male

DRUGS (2)
  1. ANTI-REJECTION MEDICATIONS [Concomitant]
     Indication: LUNG TRANSPLANT
     Dosage: UNK
     Route: 065
  2. PROGRAF [Suspect]
     Indication: LUNG TRANSPLANT
     Dosage: 3 MG, BID
     Route: 048
     Dates: start: 20090624

REACTIONS (5)
  - OFF LABEL USE [None]
  - PYREXIA [None]
  - SKIN CANCER [None]
  - NEOPLASM MALIGNANT [None]
  - PAIN [None]
